FAERS Safety Report 15979857 (Version 1)
Quarter: 2019Q1

REPORT INFORMATION
  Report Type: Spontaneous
  Country: US (occurrence: US)
  Receive Date: 20190218
  Receipt Date: 20190218
  Transmission Date: 20190418
  Serious: Yes (Other)
  Sender: FDA-Public Use
  Company Number: None

PATIENT
  Sex: Male

DRUGS (11)
  1. PROCHLORPER [Concomitant]
  2. METOROL [Concomitant]
  3. SMZ/TMP [Concomitant]
     Active Substance: SULFAMETHOXAZOLE\TRIMETHOPRIM
  4. XARELTO [Concomitant]
     Active Substance: RIVAROXABAN
  5. PREDNISONE. [Concomitant]
     Active Substance: PREDNISONE
  6. METOPROLOL TARTRATE. [Concomitant]
     Active Substance: METOPROLOL TARTRATE
  7. LEUKERAN [Suspect]
     Active Substance: CHLORAMBUCIL
     Indication: WHITE BLOOD CELL COUNT DECREASED
     Route: 048
     Dates: start: 20181107
  8. VALACYCLOVIRL [Concomitant]
  9. PANTOPRAZOLE [Concomitant]
     Active Substance: PANTOPRAZOLE
  10. MATULANE [Concomitant]
     Active Substance: PROCARBAZINE HYDROCHLORIDE
  11. ALLOPURINOL. [Concomitant]
     Active Substance: ALLOPURINOL

REACTIONS (1)
  - White blood cell count decreased [None]
